FAERS Safety Report 15095010 (Version 1)
Quarter: 2018Q3

REPORT INFORMATION
  Report Type: Spontaneous
  Country: IT (occurrence: IT)
  Receive Date: 20180701
  Receipt Date: 20180701
  Transmission Date: 20181010
  Serious: Yes (Other)
  Sender: FDA-Public Use
  Company Number: IT-TEVA-2018-IT-918173

PATIENT
  Age: 20 Year
  Sex: Male
  Weight: 44 kg

DRUGS (6)
  1. GABAPENTIN. [Concomitant]
     Active Substance: GABAPENTIN
     Indication: NEUROPATHY PERIPHERAL
     Route: 048
     Dates: start: 20170713
  2. ZOFRAN [Concomitant]
     Active Substance: ONDANSETRON HYDROCHLORIDE
     Indication: PROPHYLAXIS
     Dates: start: 20171009, end: 20171011
  3. VEPESID [Suspect]
     Active Substance: ETOPOSIDE
     Indication: PERIPHERAL NERVE SHEATH TUMOUR MALIGNANT
     Dates: start: 20171009, end: 20171011
  4. TRIMETON [Concomitant]
     Active Substance: CHLORPHENIRAMINE MALEATE
     Indication: PROPHYLAXIS
     Dates: start: 20171009, end: 20171011
  5. FLEBOCORTID RICHTER [Concomitant]
     Indication: PROPHYLAXIS
     Dates: start: 20171009, end: 20171011
  6. CARBOPLATIN. [Suspect]
     Active Substance: CARBOPLATIN
     Indication: PERIPHERAL NERVE SHEATH TUMOUR MALIGNANT
     Dates: start: 20171009, end: 20171011

REACTIONS (2)
  - Hypercholesterolaemia [Recovering/Resolving]
  - Hepatic enzyme increased [Recovering/Resolving]

NARRATIVE: CASE EVENT DATE: 20171009
